FAERS Safety Report 8032588-6 (Version None)
Quarter: 2012Q1

REPORT INFORMATION
  Report Type: 
  Country: None (occurrence: None)
  Receive Date: 20120110
  Receipt Date: 20120105
  Transmission Date: 20120608
  Serious: No
  Sender: FDA-Public Use
  Company Number: US-BAYER-2012-001851

PATIENT
  Age: 44 Year
  Sex: Female

DRUGS (1)
  1. BETASERON [Suspect]
     Indication: MULTIPLE SCLEROSIS
     Dosage: 0.25 MG QOD
     Route: 058
     Dates: start: 20080301

REACTIONS (5)
  - OEDEMA PERIPHERAL [None]
  - SKIN MASS [None]
  - SKIN WARM [None]
  - TENDERNESS [None]
  - ERYTHEMA [None]
